FAERS Safety Report 8005536-2 (Version None)
Quarter: 2011Q4

REPORT INFORMATION
  Report Type: 
  Country: None (occurrence: None)
  Receive Date: 20111223
  Receipt Date: 20111220
  Transmission Date: 20120403
  Serious: Yes (Hospitalization)
  Sender: FDA-Public Use
  Company Number: US-GILEAD-2011-0048118

PATIENT
  Age: 62 Year
  Sex: Female

DRUGS (3)
  1. ADCIRCA [Concomitant]
  2. LETAIRIS [Suspect]
     Indication: PRODUCT USED FOR UNKNOWN INDICATION
     Dosage: 10 MG, UNK
     Route: 048
     Dates: start: 20071008
  3. TYVASO [Concomitant]

REACTIONS (8)
  - BLOOD PRESSURE DECREASED [None]
  - FATIGUE [None]
  - PAIN IN EXTREMITY [None]
  - ATRIAL FIBRILLATION [None]
  - DIZZINESS [None]
  - ASTHENIA [None]
  - CARDIAC ABLATION [None]
  - HEART RATE INCREASED [None]
